FAERS Safety Report 8765259 (Version 1)
Quarter: 2012Q4

REPORT INFORMATION
  Report Type: 
  Country: US (occurrence: US)
  Receive Date: 20120903
  Receipt Date: 20120903
  Transmission Date: 20130627
  Serious: Yes (Hospitalization, Other)
  Sender: FDA-Public Use
  Company Number: US-PAR PHARMACEUTICAL, INC-2012SCPR004596

PATIENT

DRUGS (1)
  1. TRAMADOLOL HCL ER [Suspect]
     Indication: PRODUCT USED FOR UNKNOWN INDICATION
     Dosage: 60 (50 mg), tablets, single
     Route: 048

REACTIONS (6)
  - Toxicity to various agents [Recovered/Resolved]
  - Electrocardiogram abnormal [Recovered/Resolved]
  - Hypoventilation [Recovered/Resolved]
  - Mental status changes [Recovered/Resolved]
  - Troponin I increased [Unknown]
  - Blood pressure increased [Unknown]
